FAERS Safety Report 10289565 (Version 1)
Quarter: 2014Q3

REPORT INFORMATION
  Report Type: Spontaneous
  Country: DK (occurrence: DK)
  Receive Date: 20140710
  Receipt Date: 20140710
  Transmission Date: 20150326
  Serious: Yes (Other)
  Sender: FDA-Public Use
  Company Number: DK-AMGEN-DNKSP2014051474

PATIENT
  Age: 38 Year
  Sex: Female

DRUGS (2)
  1. ENBREL [Suspect]
     Active Substance: ETANERCEPT
     Indication: PSORIATIC ARTHROPATHY
     Dosage: UNK
     Route: 065
     Dates: start: 200702
  2. METHOTREXATE SODIUM. [Suspect]
     Active Substance: METHOTREXATE SODIUM
     Indication: PSORIATIC ARTHROPATHY
     Dosage: 17.5 MG, WEEKLY
     Route: 065

REACTIONS (6)
  - Sensory disturbance [Unknown]
  - Multiple sclerosis [Unknown]
  - Lhermitte^s sign [Unknown]
  - Cognitive disorder [Unknown]
  - Muscle contractions involuntary [Unknown]
  - Optic neuritis [Unknown]

NARRATIVE: CASE EVENT DATE: 200706
